FAERS Safety Report 8806873 (Version 1)
Quarter: 2012Q4

REPORT INFORMATION
  Report Type: 
  Country: US (occurrence: US)
  Receive Date: 20120925
  Receipt Date: 20120925
  Transmission Date: 20130627
  Serious: No
  Sender: FDA-Public Use
  Company Number: US-PFIZER INC-2012234759

PATIENT
  Sex: Female

DRUGS (3)
  1. LIPITOR [Suspect]
     Dosage: UNK
     Dates: start: 20100901
  2. LYRICA [Suspect]
     Dosage: UNK
     Dates: start: 20100901
  3. ARTHROTEC [Suspect]
     Dosage: UNK
     Dates: start: 20100901

REACTIONS (1)
  - Pain [Unknown]
